FAERS Safety Report 23046565 (Version 5)
Quarter: 2023Q4

REPORT INFORMATION
  Report Type: Spontaneous
  Country: US (occurrence: US)
  Receive Date: 20231009
  Receipt Date: 20231201
  Transmission Date: 20240109
  Serious: Yes (Hospitalization, Other)
  Sender: FDA-Public Use
  Company Number: US-SA-SAC20231005000831

PATIENT
  Age: 50 Year
  Sex: Female
  Weight: 72.1 kg

DRUGS (32)
  1. DUPIXENT [Suspect]
     Active Substance: DUPILUMAB
     Indication: Dermatitis atopic
     Dosage: 300 MG, QOW
     Route: 058
  2. DUPIXENT [Suspect]
     Active Substance: DUPILUMAB
     Indication: Asthma
  3. REMODULIN [Concomitant]
     Active Substance: TREPROSTINIL
  4. PRAMIPEXOLE DIHYDROCHLORIDE [Concomitant]
     Active Substance: PRAMIPEXOLE DIHYDROCHLORIDE
  5. ALBUTEROL SULFATE [Concomitant]
     Active Substance: ALBUTEROL SULFATE
  6. VITAMIN D3 [Concomitant]
     Active Substance: CHOLECALCIFEROL
  7. ALLOPURINOL [Concomitant]
     Active Substance: ALLOPURINOL
  8. CETIRIZINE HCL [Concomitant]
     Active Substance: CETIRIZINE HYDROCHLORIDE
  9. BUMETANIDE [Concomitant]
     Active Substance: BUMETANIDE
  10. ATORVASTATIN CALCIUM [Concomitant]
     Active Substance: ATORVASTATIN CALCIUM
  11. AMLODIPINE BESYLATE [Concomitant]
     Active Substance: AMLODIPINE BESYLATE
  12. METFORMIN HYDROCHLORIDE [Concomitant]
     Active Substance: METFORMIN HYDROCHLORIDE
  13. MAGNESIUM OXIDE [Concomitant]
     Active Substance: MAGNESIUM OXIDE
  14. THEOPHYLLINE [Concomitant]
     Active Substance: THEOPHYLLINE
  15. POTASSIUM CHLORIDE [Concomitant]
     Active Substance: POTASSIUM CHLORIDE
  16. AMITRIPTYLINE [Concomitant]
     Active Substance: AMITRIPTYLINE
  17. CLONIDINE [Concomitant]
     Active Substance: CLONIDINE
  18. GABAPENTIN [Concomitant]
     Active Substance: GABAPENTIN
  19. KETAMINE HYDROCHLORIDE [Concomitant]
     Active Substance: KETAMINE HYDROCHLORIDE
  20. KETOPROFEN [Concomitant]
     Active Substance: KETOPROFEN
  21. LECITHIN [Concomitant]
     Active Substance: LECITHIN
  22. LIDOCAINE HYDROCHLORIDE [Concomitant]
     Active Substance: DEXTROSE MONOHYDRATE\EPINEPHRINE\EPINEPHRINE BITARTRATE\LIDOCAINE\LIDOCAINE HYDROCHLORIDE\LIDOCAINE
  23. POLOXAMER [Concomitant]
     Active Substance: POLOXAMER
  24. ZYRTEC [Concomitant]
     Active Substance: CETIRIZINE HYDROCHLORIDE
  25. PREVACID [Concomitant]
     Active Substance: LANSOPRAZOLE
  26. ACETAMINOPHEN [Concomitant]
     Active Substance: ACETAMINOPHEN
  27. FUROSEMIDE [Concomitant]
     Active Substance: FUROSEMIDE
  28. TADALAFIL [Concomitant]
     Active Substance: TADALAFIL
  29. SYMBICORT [Concomitant]
     Active Substance: BUDESONIDE\FORMOTEROL FUMARATE DIHYDRATE
  30. SPIRIVA RESPIMAT [Concomitant]
     Active Substance: TIOTROPIUM BROMIDE
  31. CLARITIN [Concomitant]
     Active Substance: LORATADINE
  32. OXYGEN [Concomitant]
     Active Substance: OXYGEN

REACTIONS (6)
  - Pulmonary arterial hypertension [Unknown]
  - Hypervolaemia [Unknown]
  - Swelling [Unknown]
  - Dyspnoea [Unknown]
  - Blood iron decreased [Unknown]
  - Muscle twitching [Unknown]

NARRATIVE: CASE EVENT DATE: 20230101
